FAERS Safety Report 6575414-4 (Version None)
Quarter: 2010Q1

REPORT INFORMATION
  Report Type: 
  Country: None (occurrence: None)
  Receive Date: 20100208
  Receipt Date: 20100208
  Transmission Date: 20100710
  Serious: Yes (Other)
  Sender: FDA-Public Use
  Company Number: None

PATIENT
  Sex: Female
  Weight: 64.4108 kg

DRUGS (2)
  1. FENTANYL [Suspect]
     Indication: SPINAL COLUMN STENOSIS
     Dosage: 100 MCG Q 2 DAY TOPICAL PRIOR TO 2005
     Route: 061
  2. FENTANYL [Suspect]
     Indication: BACK PAIN
     Dosage: 100 MCG Q 2 DAYS TOPICAL PRIOR TO 2005
     Route: 061

REACTIONS (3)
  - AUTONOMIC NERVOUS SYSTEM IMBALANCE [None]
  - DYSPNOEA [None]
  - PRODUCT SUBSTITUTION ISSUE [None]
